FAERS Safety Report 19999904 (Version 1)
Quarter: 2021Q4

REPORT INFORMATION
  Report Type: Spontaneous
  Country: US (occurrence: US)
  Receive Date: 20211027
  Receipt Date: 20211027
  Transmission Date: 20220303
  Serious: Yes (Hospitalization)
  Sender: FDA-Public Use
  Company Number: US-ACCORD-243690

PATIENT
  Age: 58 Year
  Sex: Female
  Weight: 86 kg

DRUGS (12)
  1. ARIPIPRAZOLE [Interacting]
     Active Substance: ARIPIPRAZOLE
     Indication: Product used for unknown indication
  2. TERBINAFINE [Interacting]
     Active Substance: TERBINAFINE
     Indication: Product used for unknown indication
     Dosage: 250 MG DAILY
  3. METOPROLOL TARTRATE [Interacting]
     Active Substance: METOPROLOL TARTRATE
     Indication: Product used for unknown indication
     Dosage: 25 MG TWICE DAILY
  4. ALBUTEROL [Concomitant]
     Active Substance: ALBUTEROL
  5. ASPIRIN [Concomitant]
     Active Substance: ASPIRIN
  6. CHOLECALCIFEROL [Concomitant]
     Active Substance: CHOLECALCIFEROL
     Dosage: 2000 UNITS DAILY
  7. FERROUS SULFATE [Concomitant]
     Active Substance: FERROUS SULFATE
  8. FLUTICASONE, UMECLIDINIUM, VILANTEROL [Concomitant]
     Dosage: 100-62.5-25 MCG/PUFF DAILY
  9. LISINOPRIL [Concomitant]
     Active Substance: LISINOPRIL
     Dosage: NIGHTLY,
  10. LORAZEPAM [Concomitant]
     Active Substance: LORAZEPAM
     Indication: Anxiety
     Dosage: 1 MG EVERY 8 HOURS AS NEEDED
  11. PANTOPRAZOLE [Concomitant]
     Active Substance: PANTOPRAZOLE
     Dosage: 40 MG BEFORE BREAKFAST
  12. DULOXETINE [Concomitant]
     Active Substance: DULOXETINE

REACTIONS (5)
  - Akathisia [Unknown]
  - Restlessness [Not Recovered/Not Resolved]
  - Drug interaction [Unknown]
  - Drug level increased [Unknown]
  - Treatment noncompliance [Unknown]
